FAERS Safety Report 18411022 (Version 1)
Quarter: 2020Q4

REPORT INFORMATION
  Report Type: Spontaneous
  Country: US (occurrence: US)
  Receive Date: 20201021
  Receipt Date: 20201021
  Transmission Date: 20210114
  Serious: No
  Sender: FDA-Public Use
  Company Number: US-BAYER-2020-223213

PATIENT

DRUGS (1)
  1. BILTRICIDE [Suspect]
     Active Substance: PRAZIQUANTEL
     Dosage: UNK

REACTIONS (2)
  - Off label use [None]
  - Product prescribing issue [None]
